FAERS Safety Report 16790446 (Version 2)
Quarter: 2019Q4

REPORT INFORMATION
  Report Type: Spontaneous
  Country: US (occurrence: US)
  Receive Date: 20190910
  Receipt Date: 20191118
  Transmission Date: 20200122
  Serious: Yes (Other)
  Sender: FDA-Public Use
  Company Number: US-PFIZER INC-2019386154

PATIENT
  Age: 66 Year
  Sex: Female
  Weight: 83.46 kg

DRUGS (17)
  1. OMEPRAZOLE. [Concomitant]
     Active Substance: OMEPRAZOLE
     Dosage: 40 MG, UNK
  2. RAMIPRIL. [Concomitant]
     Active Substance: RAMIPRIL
     Dosage: 5 MG, UNK
  3. MONTELUKAST SODIUM. [Concomitant]
     Active Substance: MONTELUKAST SODIUM
     Dosage: 10 MG, UNK
  4. HYDROXYZINE HCL [Concomitant]
     Active Substance: HYDROXYZINE HYDROCHLORIDE
     Dosage: 25 MG, UNK
  5. FARXIGA [Concomitant]
     Active Substance: DAPAGLIFLOZIN PROPANEDIOL
     Dosage: 10 MG, UNK
  6. GLIPIZIDE. [Concomitant]
     Active Substance: GLIPIZIDE
     Dosage: 5 MG, UNK
  7. METHOCARBAMOL. [Concomitant]
     Active Substance: METHOCARBAMOL
     Dosage: 500 MG, UNK
  8. DULOXETINE HCL [Concomitant]
     Active Substance: DULOXETINE HYDROCHLORIDE
     Dosage: 60 MG, UNK
  9. LEVOTHYROXINE [LEVOTHYROXINE SODIUM] [Concomitant]
     Active Substance: LEVOTHYROXINE SODIUM
     Dosage: 125 UG, UNK
  10. CHANTIX [Suspect]
     Active Substance: VARENICLINE TARTRATE
     Indication: SMOKING CESSATION THERAPY
     Dosage: 1 MG, 2XDAY
     Dates: end: 20190805
  11. KETOCONAZOLE. [Concomitant]
     Active Substance: KETOCONAZOLE
  12. REPATHA [Concomitant]
     Active Substance: EVOLOCUMAB
     Dosage: UNK
  13. VITAMIN C [Concomitant]
     Active Substance: ASCORBIC ACID
     Dosage: UNK
  14. TRAMADOL HCL [Concomitant]
     Active Substance: TRAMADOL HYDROCHLORIDE
     Dosage: 50 MG, UNK
  15. IRON 100 PLUS [Concomitant]
     Active Substance: ASCORBIC ACID\CYANOCOBALAMIN\FOLIC ACID\IRON
     Dosage: UNK
  16. BUPROPION HCL [Concomitant]
     Active Substance: BUPROPION HYDROCHLORIDE
     Dosage: 150 MG, UNK
  17. DOXYCYCLINE HYCLATE [DOXYCYCLINE] [Concomitant]
     Dosage: 100 MG, UNK

REACTIONS (6)
  - Feeling guilty [Recovered/Resolved]
  - Screaming [Recovered/Resolved]
  - Suicidal ideation [Recovered/Resolved]
  - Depression [Recovered/Resolved]
  - Anxiety [Recovered/Resolved]
  - Depressed mood [Recovered/Resolved]

NARRATIVE: CASE EVENT DATE: 20190601
